FAERS Safety Report 17333835 (Version 1)
Quarter: 2020Q1

REPORT INFORMATION
  Report Type: Spontaneous
  Country: FR (occurrence: FR)
  Receive Date: 20200128
  Receipt Date: 20200128
  Transmission Date: 20200409
  Serious: Yes (Death)
  Sender: FDA-Public Use
  Company Number: FR-MYLANLABS-2020M1010125

PATIENT
  Age: 65 Year
  Sex: Male

DRUGS (5)
  1. ONDANSETRON [Suspect]
     Active Substance: ONDANSETRON
     Indication: PREMEDICATION
     Dosage: 8 MILLIGRAM
     Route: 042
     Dates: start: 20170424, end: 20170424
  2. EMEND [Suspect]
     Active Substance: APREPITANT
     Indication: PREMEDICATION
     Dosage: 125 MILLIGRAM
     Route: 048
     Dates: start: 20170424, end: 20170424
  3. METHYLPREDNISOLONE. [Suspect]
     Active Substance: METHYLPREDNISOLONE
     Indication: SQUAMOUS CELL CARCINOMA
     Dosage: 120 MILLIGRAM, QD
     Route: 042
     Dates: start: 20170420, end: 20170424
  4. GEMCITABINE. [Suspect]
     Active Substance: GEMCITABINE
     Indication: SQUAMOUS CELL CARCINOMA
     Dosage: 2166 MILLIGRAM
     Route: 042
     Dates: start: 20170424, end: 20170424
  5. CISPLATINE ACCORD [Suspect]
     Active Substance: CISPLATIN
     Indication: SQUAMOUS CELL CARCINOMA
     Dosage: 120 MILLIGRAM
     Route: 042
     Dates: start: 20170424, end: 20170424

REACTIONS (2)
  - Cardiac arrest [Fatal]
  - Epistaxis [Fatal]

NARRATIVE: CASE EVENT DATE: 20170424
